FAERS Safety Report 8515656-1 (Version None)
Quarter: 2012Q3

REPORT INFORMATION
  Report Type: 
  Country: None (occurrence: None)
  Receive Date: 20120717
  Receipt Date: 20120711
  Transmission Date: 20120928
  Serious: Yes (Other)
  Sender: FDA-Public Use
  Company Number: PHHY2012MX060631

PATIENT
  Sex: Female

DRUGS (5)
  1. ZOLEDRONOC ACID [Suspect]
     Indication: OSTEOPOROSIS
     Dosage: 1 APPLICATION (5 MG/100 ML) EACH YEAR
     Route: 042
     Dates: start: 20070101
  2. ZOLEDRONOC ACID [Suspect]
     Dosage: 1 APPLICATION (5 MG/100 ML) EACH YEAR
     Route: 042
     Dates: start: 20090101
  3. ZOLEDRONOC ACID [Suspect]
     Dosage: 1 APPLICATION (5 MG/100 ML) EACH YEAR
     Route: 042
     Dates: start: 20100101
  4. ZOLEDRONOC ACID [Suspect]
     Dosage: 1 APPLICATION (5 MG/100 ML) EACH YEAR
     Route: 042
     Dates: start: 20080101
  5. EXELON [Suspect]
     Indication: AMNESIA
     Dosage: 1 PATCH (UNK MG) DAILY
     Route: 062

REACTIONS (3)
  - EXOSTOSIS [None]
  - DYSPHAGIA [None]
  - BLOOD CALCIUM INCREASED [None]
